FAERS Safety Report 24891551 (Version 1)
Quarter: 2025Q1

REPORT INFORMATION
  Report Type: Spontaneous
  Country: CN (occurrence: CN)
  Receive Date: 20250127
  Receipt Date: 20250127
  Transmission Date: 20250409
  Serious: Yes (Other)
  Sender: MERCK
  Company Number: CN-009507513-2501CHN009089

PATIENT
  Age: 7 Year
  Sex: Male
  Weight: 21.7 kg

DRUGS (20)
  1. CASPOFUNGIN ACETATE [Interacting]
     Active Substance: CASPOFUNGIN ACETATE
     Indication: Clostridium difficile infection
     Route: 041
     Dates: start: 2023
  2. TACROLIMUS [Suspect]
     Active Substance: TACROLIMUS
     Indication: Transplant rejection
     Dates: start: 2023
  3. TACROLIMUS [Suspect]
     Active Substance: TACROLIMUS
     Dates: start: 2023, end: 2023
  4. MAGNESIUM ISOGLYCYRRHIZINATE [Concomitant]
     Active Substance: MAGNESIUM ISOGLYCYRRHIZINATE
     Indication: Prophylaxis
     Dates: start: 2023, end: 2023
  5. MYCOPHENOLATE MOFETIL [Concomitant]
     Active Substance: MYCOPHENOLATE MOFETIL
     Indication: Transplant rejection
     Dates: start: 2023
  6. METHYLPREDNISOLONE [Concomitant]
     Active Substance: METHYLPREDNISOLONE
     Indication: Transplant rejection
     Dates: start: 2023
  7. SULFAMETHOXAZOLE [Concomitant]
     Active Substance: SULFAMETHOXAZOLE
     Indication: Infection prophylaxis
     Dates: start: 2023
  8. ASPIRIN [Concomitant]
     Active Substance: ASPIRIN
     Indication: Anticoagulant therapy
     Route: 048
     Dates: start: 2023, end: 2023
  9. ALPROSTADIL [Concomitant]
     Active Substance: ALPROSTADIL
     Indication: Thrombosis prophylaxis
     Dates: start: 2023
  10. FLUDARABINE [Concomitant]
     Active Substance: FLUDARABINE PHOSPHATE
     Dates: start: 2023
  11. LAPINE T-LYMPHOCYTE IMMUNE GLOBULIN [Concomitant]
     Active Substance: LAPINE T-LYMPHOCYTE IMMUNE GLOBULIN
     Dates: start: 2023
  12. FLUCONAZOLE [Concomitant]
     Active Substance: FLUCONAZOLE
     Indication: Fungal infection
     Dates: start: 2023, end: 2023
  13. GANCICLOVIR [Concomitant]
     Active Substance: GANCICLOVIR
     Indication: Antiviral prophylaxis
     Dates: start: 2023
  14. VALPROATE SODIUM [Concomitant]
     Active Substance: VALPROATE SODIUM
     Indication: Prophylaxis
     Dates: start: 2023
  15. ENTECAVIR [Concomitant]
     Active Substance: ENTECAVIR
     Indication: Antiviral prophylaxis
     Dates: start: 2023
  16. ADEMETIONINE [Concomitant]
     Active Substance: ADEMETIONINE
     Indication: Prophylaxis
     Dates: start: 2023, end: 2023
  17. HUANG LIAN SU [Concomitant]
     Indication: Diarrhoea
     Dates: start: 2023
  18. MONTMORILLONITE [Concomitant]
     Active Substance: MONTMORILLONITE
     Indication: Diarrhoea
     Dates: start: 2023
  19. VANCOMYCIN [Concomitant]
     Active Substance: VANCOMYCIN
     Indication: Diarrhoea
     Dates: start: 2023
  20. LIVE COMBINED BACILLUS SUBTILIS AND ENTEROCOCCUS FAECIUM [Concomitant]
     Indication: Diarrhoea
     Route: 048
     Dates: start: 2023

REACTIONS (2)
  - Drug-induced liver injury [Unknown]
  - Labelled drug-drug interaction issue [Unknown]

NARRATIVE: CASE EVENT DATE: 20230101
